FAERS Safety Report 7621549-4 (Version None)
Quarter: 2011Q3

REPORT INFORMATION
  Report Type: 
  Country: None (occurrence: None)
  Receive Date: 20110719
  Receipt Date: 20110711
  Transmission Date: 20111222
  Serious: Yes (Hospitalization)
  Sender: FDA-Public Use
  Company Number: PHHY2011US62704

PATIENT
  Sex: Male

DRUGS (1)
  1. GLEEVEC [Suspect]
     Indication: GASTRIC CANCER
     Dosage: 400 MG, UNK
     Route: 048
     Dates: start: 20100923

REACTIONS (1)
  - ACCIDENT [None]
